FAERS Safety Report 16736169 (Version 1)
Quarter: 2019Q3

REPORT INFORMATION
  Report Type: Spontaneous
  Country: US (occurrence: US)
  Receive Date: 20190823
  Receipt Date: 20190823
  Transmission Date: 20191005
  Serious: Yes (Other)
  Sender: FDA-Public Use
  Company Number: US-BAYER-2019-152082

PATIENT
  Sex: Female

DRUGS (2)
  1. BAYER LOW DOSE [Suspect]
     Active Substance: ASPIRIN
     Indication: MUSCULOSKELETAL PAIN
     Dosage: 10 DF, BETWEEN YESTERDAY AND THE DAY BEFORE
  2. BAYER ASPIRIN [Suspect]
     Active Substance: ASPIRIN
     Indication: MUSCULOSKELETAL PAIN
     Dosage: 20 DF, BETWEEN YESTERDAY AND THE DAY BEFORE

REACTIONS (6)
  - Intentional overdose [Not Recovered/Not Resolved]
  - Aphonia [Not Recovered/Not Resolved]
  - Skin discomfort [Not Recovered/Not Resolved]
  - Intentional overdose [Not Recovered/Not Resolved]
  - Tinnitus [Recovered/Resolved]
  - Suicidal ideation [None]

NARRATIVE: CASE EVENT DATE: 201908
